FAERS Safety Report 18037402 (Version 4)
Quarter: 2020Q3

REPORT INFORMATION
  Report Type: Spontaneous
  Country: JP (occurrence: JP)
  Receive Date: 20200717
  Receipt Date: 20200907
  Transmission Date: 20201103
  Serious: Yes (Death, Hospitalization, Other)
  Sender: FDA-Public Use
  Company Number: JP-BRISTOL-MYERS SQUIBB COMPANY-BMS-2020-053940

PATIENT
  Age: 73 Year
  Sex: Male
  Weight: 62 kg

DRUGS (7)
  1. CALONAL [Concomitant]
     Active Substance: ACETAMINOPHEN
     Indication: OESOPHAGEAL CARCINOMA
     Dosage: 500 MILLIGRAM, Q6H
     Route: 048
     Dates: start: 20200325, end: 20200705
  2. MAGMITT [Concomitant]
     Active Substance: MAGNESIUM OXIDE
     Indication: PRODUCT USED FOR UNKNOWN INDICATION
     Dosage: 250 MILLIGRAM, Q8H
     Route: 048
     Dates: start: 20200329, end: 20200705
  3. GASMOTIN [Concomitant]
     Active Substance: MOSAPRIDE CITRATE
     Indication: OESOPHAGEAL CARCINOMA
     Dosage: 5 MILLIGRAM, Q8H
     Route: 048
     Dates: start: 20200408, end: 20200715
  4. DAIKENCHUTO [Concomitant]
     Active Substance: HERBALS
     Indication: OESOPHAGEAL CARCINOMA
     Dosage: 2.5 GRAM, Q8H
     Route: 048
     Dates: start: 20200325, end: 20200715
  5. SAMSCA [Concomitant]
     Active Substance: TOLVAPTAN
     Indication: PRODUCT USED FOR UNKNOWN INDICATION
     Dosage: 7.5 MILLIGRAM, EVERYDAY
     Route: 048
  6. TS?1 [Concomitant]
     Active Substance: GIMERACIL\OTERACIL\TEGAFUR
     Indication: OESOPHAGEAL CARCINOMA
     Dosage: 40 MILLIGRAM, Q12H
     Route: 048
     Dates: start: 20200530, end: 20200612
  7. OPDIVO [Suspect]
     Active Substance: NIVOLUMAB
     Indication: OESOPHAGEAL CARCINOMA
     Dosage: 240 MILLIGRAM, Q2WK
     Route: 041
     Dates: start: 20200427, end: 20200427

REACTIONS (3)
  - Tumour haemorrhage [Fatal]
  - Acute hepatic failure [Fatal]
  - Hepatic encephalopathy [Unknown]

NARRATIVE: CASE EVENT DATE: 20200511
